FAERS Safety Report 10995453 (Version 1)
Quarter: 2015Q2

REPORT INFORMATION
  Report Type: Spontaneous
  Country: US (occurrence: US)
  Receive Date: 20150407
  Receipt Date: 20150407
  Transmission Date: 20150821
  Serious: Yes (Hospitalization)
  Sender: FDA-Public Use
  Company Number: PHEH2015US006532

PATIENT
  Sex: Female

DRUGS (4)
  1. DILANTIN [Concomitant]
     Active Substance: PHENYTOIN
     Indication: PRODUCT USED FOR UNKNOWN INDICATION
     Route: 065
  2. RECLAST [Suspect]
     Active Substance: ZOLEDRONIC ACID
     Indication: OSTEOPOROSIS
     Dosage: ONCE YEARLY
     Route: 042
  3. KLONOPIN [Concomitant]
     Active Substance: CLONAZEPAM
     Route: 065
  4. PREDNISONE. [Concomitant]
     Active Substance: PREDNISONE
     Indication: PRODUCT USED FOR UNKNOWN INDICATION
     Route: 065

REACTIONS (10)
  - Pleural effusion [Unknown]
  - Fatigue [Unknown]
  - Dehydration [Unknown]
  - Heart rate increased [Not Recovered/Not Resolved]
  - Hypertension [Unknown]
  - Dysgeusia [Unknown]
  - Chills [Unknown]
  - Discomfort [Unknown]
  - Pyrexia [Not Recovered/Not Resolved]
  - Headache [Recovering/Resolving]
